FAERS Safety Report 10423621 (Version 1)
Quarter: 2014Q3

REPORT INFORMATION
  Report Type: Spontaneous
  Country: US (occurrence: None)
  Receive Date: 20140731
  Receipt Date: 20140731
  Transmission Date: 20150326
  Serious: Yes (Hospitalization)
  Sender: FDA-Public Use
  Company Number: GXBR2013US002042

PATIENT
  Age: 65 Year
  Sex: Male
  Weight: 63.5 kg

DRUGS (1)
  1. LIDOCAINE. [Suspect]
     Active Substance: LIDOCAINE
     Indication: LOCAL ANAESTHESIA
     Dosage: 1 DF, ONCE/SINGLE, INTRANASAL
     Dates: start: 20130821, end: 20130821

REACTIONS (4)
  - Nasal congestion [None]
  - Hypersensitivity [None]
  - Dyspnoea [None]
  - Dizziness [None]

NARRATIVE: CASE EVENT DATE: 20130821
